FAERS Safety Report 14913807 (Version 1)
Quarter: 2018Q2

REPORT INFORMATION
  Report Type: Report from Study
  Country: DE (occurrence: DE)
  Receive Date: 20180518
  Receipt Date: 20180518
  Transmission Date: 20180711
  Serious: Yes (Other)
  Sender: FDA-Public Use
  Company Number: DE-ELI_LILLY_AND_COMPANY-DE201804015316

PATIENT
  Age: 71 Year
  Sex: Male
  Weight: 65 kg

DRUGS (1)
  1. CETUXIMAB. [Suspect]
     Active Substance: CETUXIMAB
     Indication: COLON CANCER
     Dosage: UNK, WEEKLY (1/W)
     Route: 042
     Dates: start: 201802

REACTIONS (9)
  - Gastritis [Recovering/Resolving]
  - Weight decreased [Recovering/Resolving]
  - Gastrointestinal inflammation [Recovering/Resolving]
  - Vomiting [Recovering/Resolving]
  - Blood potassium decreased [Unknown]
  - Abdominal distension [Recovering/Resolving]
  - Malaise [Recovering/Resolving]
  - Diarrhoea [Recovering/Resolving]
  - Duodenal ulcer [Recovering/Resolving]

NARRATIVE: CASE EVENT DATE: 201801
